FAERS Safety Report 15627004 (Version 1)
Quarter: 2018Q4

REPORT INFORMATION
  Report Type: Report from Study
  Country: UG (occurrence: UG)
  Receive Date: 20181116
  Receipt Date: 20181116
  Transmission Date: 20190205
  Serious: Yes (Other)
  Sender: FDA-Public Use
  Company Number: UG-MYLANLABS-2018M1086999

PATIENT
  Sex: Male
  Weight: 2.7 kg

DRUGS (2)
  1. DOLUTEGRAVIR [Suspect]
     Active Substance: DOLUTEGRAVIR
     Indication: HIV INFECTION
     Dosage: 50 MG, QD
     Route: 064
     Dates: start: 20180405
  2. LAMIVUDINE/TENOFOVIR ALAFENAMIDE [Suspect]
     Active Substance: LAMIVUDINE\TENOFOVIR
     Indication: HIV INFECTION
     Dosage: UNK
     Route: 064
     Dates: start: 20180405

REACTIONS (2)
  - Stillbirth [Recovered/Resolved]
  - Foetal exposure during pregnancy [Recovered/Resolved]

NARRATIVE: CASE EVENT DATE: 20180508
